FAERS Safety Report 16264588 (Version 2)
Quarter: 2019Q2

REPORT INFORMATION
  Report Type: Spontaneous
  Country: US (occurrence: US)
  Receive Date: 20190502
  Receipt Date: 20190514
  Transmission Date: 20190711
  Serious: No
  Sender: FDA-Public Use
  Company Number: US-PFIZER INC-2019180401

PATIENT
  Age: 96 Year
  Sex: Female

DRUGS (1)
  1. LYRICA [Suspect]
     Active Substance: PREGABALIN
     Indication: FEMUR FRACTURE
     Dosage: 75 MG, 1X/DAY

REACTIONS (2)
  - Visual impairment [Unknown]
  - Tremor [Unknown]
